FAERS Safety Report 14633847 (Version 2)
Quarter: 2018Q2

REPORT INFORMATION
  Report Type: Spontaneous
  Country: FR (occurrence: FR)
  Receive Date: 20180314
  Receipt Date: 20180427
  Transmission Date: 20180711
  Serious: Yes (Hospitalization, Other)
  Sender: FDA-Public Use
  Company Number: FR-TELIGENT, INC-IGIL20180134

PATIENT
  Age: 85 Year
  Sex: Female
  Weight: 59 kg

DRUGS (5)
  1. AMBISOME [Suspect]
     Active Substance: AMPHOTERICIN B
     Indication: PYREXIA
     Dosage: 200 MG
     Route: 042
     Dates: start: 20180108, end: 20180115
  2. LASILIX [Concomitant]
     Active Substance: FUROSEMIDE
     Indication: PRODUCT USED FOR UNKNOWN INDICATION
     Dosage: 40 MG
     Route: 065
     Dates: start: 20180109, end: 20180122
  3. CEFTAZIDIME. [Suspect]
     Active Substance: CEFTAZIDIME
     Indication: PYREXIA
     Dosage: 3 DF
     Route: 042
     Dates: start: 20180104, end: 20180124
  4. ZYLORIC [Suspect]
     Active Substance: ALLOPURINOL
     Indication: PROPHYLAXIS
     Dosage: 1 DF
     Route: 048
     Dates: start: 20180102
  5. VANCOMYCINE [Suspect]
     Active Substance: VANCOMYCIN
     Indication: PYREXIA
     Dosage: 2 G
     Route: 042
     Dates: start: 20180104, end: 20180122

REACTIONS (1)
  - Acute kidney injury [Recovered/Resolved with Sequelae]

NARRATIVE: CASE EVENT DATE: 20180118
